FAERS Safety Report 18170942 (Version 2)
Quarter: 2020Q4

REPORT INFORMATION
  Report Type: Report from Study
  Country: US (occurrence: US)
  Receive Date: 20200819
  Receipt Date: 20201002
  Transmission Date: 20210113
  Serious: Yes (Life-Threatening, Hospitalization)
  Sender: FDA-Public Use
  Company Number: US-TEVA-2020-US-1817333

PATIENT
  Age: 63 Year
  Sex: Female
  Weight: 80 kg

DRUGS (9)
  1. TEGRETOL 200MG [Concomitant]
  2. LYRICA [Concomitant]
     Active Substance: PREGABALIN
  3. CYCLOBENZAPRINE 10MG [Concomitant]
     Active Substance: CYCLOBENZAPRINE
  4. AUSTEDO [Interacting]
     Active Substance: DEUTETRABENAZINE
     Dosage: 6MG QAM AND 12MG QPM
     Route: 048
     Dates: end: 20200701
  5. PROMETHAZINE 25MG [Concomitant]
  6. AUSTEDO [Interacting]
     Active Substance: DEUTETRABENAZINE
     Dosage: 12 MILLIGRAM DAILY;
     Route: 048
  7. AUSTEDO [Suspect]
     Active Substance: DEUTETRABENAZINE
     Indication: TARDIVE DYSKINESIA
     Dosage: 6 MILLIGRAM DAILY;
     Route: 048
     Dates: start: 20200614
  8. QUETIAPINE 300MG [Concomitant]
     Active Substance: QUETIAPINE
  9. FENTANYL 100MCG/HR PATCH [Concomitant]
     Dosage: 100MCG/HR

REACTIONS (6)
  - Feeling abnormal [Recovered/Resolved with Sequelae]
  - Cyanosis [Recovered/Resolved with Sequelae]
  - Confusional state [Recovering/Resolving]
  - Swollen tongue [Recovered/Resolved with Sequelae]
  - Loss of consciousness [Recovered/Resolved with Sequelae]
  - Drug interaction [Unknown]

NARRATIVE: CASE EVENT DATE: 20200701
